FAERS Safety Report 14332029 (Version 2)
Quarter: 2018Q1

REPORT INFORMATION
  Report Type: Report from Study
  Country: BR (occurrence: BR)
  Receive Date: 20171228
  Receipt Date: 20180109
  Transmission Date: 20180509
  Serious: Yes (Congenital Anomaly, Other)
  Sender: FDA-Public Use
  Company Number: BR-MYLANLABS-2017M1078574

PATIENT
  Sex: Male
  Weight: 3.13 kg

DRUGS (1)
  1. EFAVIRENZ/LAMIVUDINE/TENOFOVIR [Suspect]
     Active Substance: EFAVIRENZ\LAMIVUDINE\TENOFOVIR DISOPROXIL FUMARATE
     Indication: HIV INFECTION
     Dosage: 1200 MG, QD
     Route: 064
     Dates: start: 20170607

REACTIONS (2)
  - Foetal exposure during pregnancy [Recovered/Resolved]
  - Cryptorchism [Unknown]
